FAERS Safety Report 9564517 (Version 4)
Quarter: 2013Q4

REPORT INFORMATION
  Report Type: Spontaneous
  Country: US (occurrence: US)
  Receive Date: 20130930
  Receipt Date: 20131218
  Transmission Date: 20140711
  Serious: Yes (Other)
  Sender: FDA-Public Use
  Company Number: US-PFIZER INC-2013276865

PATIENT
  Age: 86 Year
  Sex: Male

DRUGS (3)
  1. CELEBREX [Suspect]
     Dosage: UNK
  2. CELEBREX [Suspect]
     Dosage: UNK
     Dates: end: 2013
  3. XALATAN [Suspect]
     Dosage: UNK

REACTIONS (6)
  - Fall [Unknown]
  - Hand fracture [Unknown]
  - Upper limb fracture [Recovering/Resolving]
  - Limb injury [Unknown]
  - Accident [Unknown]
  - Pruritus [Unknown]
